FAERS Safety Report 19258411 (Version 1)
Quarter: 2021Q2

REPORT INFORMATION
  Report Type: Not Available
  Country: None (occurrence: None)
  Receive Date: 20210514
  Receipt Date: 20210514
  Transmission Date: 20210717
  Serious: Yes (Death)
  Sender: FDA-Public Use
  Company Number: US-AKORN-167234

PATIENT
  Age: 77 Year
  Sex: Male

DRUGS (1)
  1. BRIMONIDINE TARTRATE. [Suspect]
     Active Substance: BRIMONIDINE TARTRATE

REACTIONS (1)
  - Neoplasm malignant [Fatal]
